FAERS Safety Report 20827602 (Version 1)
Quarter: 2022Q2

REPORT INFORMATION
  Report Type: Spontaneous
  Country: US (occurrence: None)
  Receive Date: 20220513
  Receipt Date: 20220513
  Transmission Date: 20220721
  Serious: Yes (Other)
  Sender: FDA-Public Use
  Company Number: None

PATIENT
  Sex: Female

DRUGS (7)
  1. MAKENA [Suspect]
     Active Substance: HYDROXYPROGESTERONE CAPROATE
  2. ASPIRIN LOW TAB [Concomitant]
  3. FOLIC ACID [Concomitant]
  4. IRON SLOW [Concomitant]
  5. LEVETIRACETA [Concomitant]
  6. VITAMINS [Concomitant]
     Active Substance: VITAMINS
  7. VITAMIN B-12 [Concomitant]

REACTIONS (3)
  - Abortion spontaneous [None]
  - Therapy cessation [None]
  - Exposure during pregnancy [None]
